FAERS Safety Report 7710393-5 (Version None)
Quarter: 2011Q3

REPORT INFORMATION
  Report Type: 
  Country: None (occurrence: None)
  Receive Date: 20110825
  Receipt Date: 20110817
  Transmission Date: 20111222
  Serious: Yes (Hospitalization, Other)
  Sender: FDA-Public Use
  Company Number: US-ELI_LILLY_AND_COMPANY-US201104002767

PATIENT
  Sex: Male
  Weight: 122.45 kg

DRUGS (12)
  1. ZYRTEC [Concomitant]
     Dosage: UNK
  2. BYETTA [Suspect]
     Dosage: 10 UG, BID
     Dates: end: 20080818
  3. DOCUSATE SODIUM [Concomitant]
     Dosage: 100 MG, QD
  4. VERAMYST [Concomitant]
  5. AVANDARYL [Concomitant]
     Dosage: 8 MG, QD
  6. MOBIC [Concomitant]
     Dosage: 75 MG, QD
  7. XALATAN [Concomitant]
  8. BYETTA [Suspect]
     Dosage: 5 UG, BID
     Route: 058
     Dates: start: 20060317
  9. ZOCOR [Concomitant]
     Dosage: 40 MG, QD
  10. ASPIRIN [Concomitant]
     Dosage: 81 MG, QD
  11. METFORMIN HCL [Concomitant]
     Dosage: 1000 MG, BID
  12. NEXIUM [Concomitant]
     Dosage: 40 MG, QD

REACTIONS (6)
  - WEIGHT DECREASED [None]
  - ANXIETY [None]
  - CHOLECYSTITIS ACUTE [None]
  - PANCREATITIS ACUTE [None]
  - CHOLECYSTITIS CHRONIC [None]
  - DEPRESSION [None]
